FAERS Safety Report 22366973 (Version 1)
Quarter: 2023Q2

REPORT INFORMATION
  Report Type: Spontaneous
  Country: IT (occurrence: IT)
  Receive Date: 20230525
  Receipt Date: 20230525
  Transmission Date: 20230721
  Serious: Yes (Other)
  Sender: FDA-Public Use
  Company Number: None

PATIENT
  Age: 22 Year
  Sex: Female

DRUGS (2)
  1. VALIUM [Suspect]
     Active Substance: DIAZEPAM
     Indication: Anxiety
     Dosage: DOSAGGIO: 50?UNITA DI MISURA: GOCCE?FREQUENZA SOMMINISTRAZIONE: TOTALE?VIA SOMMINISTRAZIONE: ORAL...
     Route: 050
     Dates: start: 20230110, end: 20230110
  2. BROMAZEPAM [Suspect]
     Active Substance: BROMAZEPAM
     Indication: Anxiety
     Dosage: DOSAGGIO: 10?UNITA DI MISURA: MILLILITRI?FREQUENZA SOMMINISTRAZIONE: TOTALE?VIA SOMMINISTRAZIONE:...
     Route: 050
     Dates: start: 20230109, end: 20230110

REACTIONS (3)
  - Intentional product misuse [Recovering/Resolving]
  - Expired product administered [Unknown]
  - Sopor [Recovering/Resolving]

NARRATIVE: CASE EVENT DATE: 20230110
